FAERS Safety Report 14921511 (Version 1)
Quarter: 2018Q2

REPORT INFORMATION
  Report Type: Spontaneous
  Country: US (occurrence: US)
  Receive Date: 20180522
  Receipt Date: 20180522
  Transmission Date: 20180711
  Serious: Yes (Death, Life-Threatening, Other)
  Sender: FDA-Public Use
  Company Number: US-MACLEODS PHARMACEUTICALS US LTD-MAC2018013495

PATIENT
  Age: 48 Year
  Sex: Male

DRUGS (8)
  1. GLYCERYL TRINITRATE [Suspect]
     Active Substance: NITROGLYCERIN
     Indication: PRINZMETAL ANGINA
  2. GEMCITABINE [Concomitant]
     Active Substance: GEMCITABINE\GEMCITABINE HYDROCHLORIDE
     Indication: CHOLANGIOCARCINOMA
     Dosage: UNK
     Route: 065
  3. GLYCERYL TRINITRATE [Suspect]
     Active Substance: NITROGLYCERIN
     Indication: ARTERIOSPASM CORONARY
     Dosage: UNK
     Route: 065
  4. CISPLATIN. [Concomitant]
     Active Substance: CISPLATIN
     Indication: CHOLANGIOCARCINOMA
     Dosage: UNK
     Route: 065
  5. AMLODIPINE BESYLATE. [Suspect]
     Active Substance: AMLODIPINE BESYLATE
     Indication: ARTERIOSPASM CORONARY
  6. AMLODIPINE BESYLATE. [Suspect]
     Active Substance: AMLODIPINE BESYLATE
     Indication: PRINZMETAL ANGINA
     Dosage: UNK
     Route: 065
  7. AMLODIPINE BESYLATE. [Suspect]
     Active Substance: AMLODIPINE BESYLATE
     Indication: SYSTOLIC DYSFUNCTION
  8. GLYCERYL TRINITRATE [Suspect]
     Active Substance: NITROGLYCERIN
     Indication: SYSTOLIC DYSFUNCTION

REACTIONS (2)
  - Ventricular fibrillation [Fatal]
  - Drug ineffective [Fatal]
